FAERS Safety Report 21537490 (Version 1)
Quarter: 2022Q4

REPORT INFORMATION
  Report Type: Spontaneous
  Country: US (occurrence: None)
  Receive Date: 20221101
  Receipt Date: 20221101
  Transmission Date: 20230113
  Serious: Yes (Life-Threatening, Other)
  Sender: FDA-Public Use
  Company Number: 2022A359844

PATIENT
  Age: 63 Year
  Sex: Female

DRUGS (8)
  1. SEROQUEL [Suspect]
     Active Substance: QUETIAPINE FUMARATE
     Route: 048
  2. ADDERALL [Suspect]
     Active Substance: AMPHETAMINE ASPARTATE\AMPHETAMINE SULFATE\DEXTROAMPHETAMINE SACCHARATE\DEXTROAMPHETAMINE SULFATE
     Route: 065
  3. AMBIEN [Suspect]
     Active Substance: ZOLPIDEM TARTRATE
     Route: 065
  4. SINEMET [Suspect]
     Active Substance: CARBIDOPA\LEVODOPA
     Route: 065
  5. METHADONE [Suspect]
     Active Substance: METHADONE HYDROCHLORIDE
     Route: 065
  6. PAXIL [Suspect]
     Active Substance: PAROXETINE HYDROCHLORIDE
     Route: 065
  7. PHENERGAN [Suspect]
     Active Substance: PROMETHAZINE HYDROCHLORIDE
     Route: 065
  8. XANAX [Suspect]
     Active Substance: ALPRAZOLAM
     Route: 065

REACTIONS (4)
  - Catatonia [Unknown]
  - Acute myocardial infarction [Unknown]
  - Rhabdomyolysis [Unknown]
  - Parkinsonism [Unknown]
